FAERS Safety Report 7534709-8 (Version None)
Quarter: 2011Q2

REPORT INFORMATION
  Report Type: 
  Country: None (occurrence: None)
  Receive Date: 20110609
  Receipt Date: 20110513
  Transmission Date: 20111010
  Serious: Yes (Hospitalization, Other)
  Sender: FDA-Public Use
  Company Number: PHHY2011MX43012

PATIENT
  Age: 47 Year
  Sex: Female

DRUGS (10)
  1. BASILIXIMAB [Concomitant]
     Indication: IMMUNOSUPPRESSION
     Dosage: 20 MG
  2. MYCOPHENOLATE MEFETIL [Concomitant]
     Dosage: 1 G EACH 12 HOURS
  3. METHYLPREDNISOLONE [Concomitant]
     Indication: IMMUNOSUPPRESSION
     Dosage: 1 G
     Route: 042
  4. MYCOPHENOLATE MEFETIL [Concomitant]
     Dosage: 500 MG EACH 12 HOURS
  5. CYCLOSPORINE [Suspect]
     Dosage: 75 MG EACH 12 HOURS
  6. PREDNISONE [Concomitant]
     Dosage: 7.5 MG EACH 24 HOURS
  7. STEROIDS NOS [Concomitant]
     Dosage: UNK
  8. CYCLOSPORINE [Suspect]
     Indication: RENAL TRANSPLANT
     Dosage: 125 MG EACH 12 HOURS
  9. PREDNISONE [Concomitant]
     Dosage: 50 MG
     Route: 048
  10. PREDNISONE [Concomitant]
     Dosage: 10 MG

REACTIONS (8)
  - NON-HODGKIN'S LYMPHOMA [None]
  - DEHYDRATION [None]
  - ABDOMINAL PAIN [None]
  - BILE DUCT STONE [None]
  - PYREXIA [None]
  - PEPTIC ULCER [None]
  - DIARRHOEA [None]
  - LEUKOPENIA [None]
